FAERS Safety Report 24921012 (Version 1)
Quarter: 2025Q1

REPORT INFORMATION
  Report Type: Spontaneous
  Country: CN (occurrence: CN)
  Receive Date: 20250204
  Receipt Date: 20250204
  Transmission Date: 20250408
  Serious: Yes (Hospitalization, Other)
  Sender: SANOFI AVENTIS
  Company Number: CN-SA-2025SA029470

PATIENT
  Age: 73 Year
  Sex: Male

DRUGS (2)
  1. OXALIPLATIN [Suspect]
     Active Substance: OXALIPLATIN
     Indication: Colon cancer
     Dates: start: 2002
  2. CAPECITABINE [Suspect]
     Active Substance: CAPECITABINE
     Indication: Colon cancer
     Dates: start: 2022

REACTIONS (17)
  - Spleen disorder [Recovered/Resolved]
  - Asthenia [Recovered/Resolved]
  - Fatigue [Recovered/Resolved]
  - Peripheral coldness [Recovering/Resolving]
  - Feeling cold [Recovering/Resolving]
  - Gastrointestinal disorder [Recovered/Resolved]
  - Tongue discolouration [Recovered/Resolved]
  - Decreased appetite [Recovered/Resolved]
  - Tongue coated [Recovered/Resolved]
  - Insomnia [Recovering/Resolving]
  - Intestinal obstruction [Recovered/Resolved]
  - Abdominal pain [Recovered/Resolved]
  - Vomiting [Recovered/Resolved]
  - Nausea [Recovered/Resolved]
  - Diarrhoea [Recovered/Resolved]
  - Eructation [Recovered/Resolved]
  - Abdominal distension [Recovered/Resolved]

NARRATIVE: CASE EVENT DATE: 20221001
